FAERS Safety Report 9934465 (Version 2)
Quarter: 2014Q1

REPORT INFORMATION
  Report Type: Spontaneous
  Country: US (occurrence: US)
  Receive Date: 20140228
  Receipt Date: 20140228
  Transmission Date: 20141002
  Serious: Yes (Disabling)
  Sender: FDA-Public Use
  Company Number: US-GE HEALTHCARE MEDICAL DIAGNOSTICS-OSCN-PR-0805S-0257

PATIENT
  Age: 21 Year
  Sex: Female

DRUGS (16)
  1. OMNISCAN [Suspect]
     Indication: CEREBROVASCULAR ACCIDENT
     Dates: start: 20030211, end: 20030211
  2. OMNISCAN [Suspect]
     Indication: TRANSPLANT EVALUATION
     Dates: start: 20050518, end: 20050518
  3. OMNISCAN [Suspect]
     Indication: SWELLING
     Dates: start: 20050823, end: 20050823
  4. OMNISCAN [Suspect]
     Indication: ASTHENIA
     Route: 065
     Dates: start: 20060609, end: 20060609
  5. MAGNEVIST [Suspect]
     Indication: CEREBROVASCULAR ACCIDENT
     Dates: start: 20030206, end: 20030206
  6. MAGNEVIST [Suspect]
     Indication: PRODUCT USED FOR UNKNOWN INDICATION
     Dates: start: 20030207, end: 20030207
  7. MAGNEVIST [Suspect]
     Indication: PRODUCT USED FOR UNKNOWN INDICATION
     Dates: start: 20030215, end: 20030215
  8. MAGNEVIST [Suspect]
     Indication: RENAL FAILURE CHRONIC
     Dates: start: 20030217, end: 20030217
  9. MAGNEVIST [Suspect]
     Indication: CEREBROVASCULAR ACCIDENT
     Dates: start: 20040226, end: 20040226
  10. MAGNEVIST [Suspect]
     Indication: PRODUCT USED FOR UNKNOWN INDICATION
     Dates: start: 20050225, end: 20050225
  11. MAGNEVIST [Suspect]
     Indication: HYPOAESTHESIA
     Dates: start: 20050811, end: 20050811
  12. MAGNEVIST [Suspect]
     Indication: ASTHENIA
     Dates: start: 20050824, end: 20050824
  13. MAGNEVIST [Suspect]
     Indication: RENAL FAILURE
     Dates: start: 20060217, end: 20060217
  14. MAGNEVIST [Suspect]
     Indication: OEDEMA
     Dates: start: 20060530, end: 20060530
  15. MAGNEVIST [Suspect]
     Indication: CEREBROVASCULAR ACCIDENT
  16. MAGNEVIST [Suspect]
     Indication: CALCIFICATION OF MUSCLE

REACTIONS (1)
  - Nephrogenic systemic fibrosis [Not Recovered/Not Resolved]
